FAERS Safety Report 8789915 (Version 2)
Quarter: 2012Q4

REPORT INFORMATION
  Report Type: 
  Country: US (occurrence: US)
  Receive Date: 20120917
  Receipt Date: 20121015
  Transmission Date: 20130627
  Serious: Yes (Other)
  Sender: FDA-Public Use
  Company Number: US-CELGENEUS-163-21880-12090751

PATIENT
  Sex: Male

DRUGS (3)
  1. REVLIMID [Suspect]
     Indication: 5Q MINUS MDS
     Dosage: 10 Milligram
     Route: 048
     Dates: start: 20120820, end: 20120914
  2. SIMVASTATIN [Concomitant]
     Indication: LIPIDS INCREASED
     Dosage: 80 Milligram
     Route: 048
  3. LASIX [Concomitant]
     Indication: CONGESTIVE HEART FAILURE
     Dosage: 40 Milligram
     Route: 048

REACTIONS (2)
  - Pancytopenia [Unknown]
  - Oedema peripheral [Not Recovered/Not Resolved]
